FAERS Safety Report 18851444 (Version 1)
Quarter: 2021Q1

REPORT INFORMATION
  Report Type: Report from Study
  Country: CO (occurrence: CO)
  Receive Date: 20210205
  Receipt Date: 20210205
  Transmission Date: 20210420
  Serious: Yes (Hospitalization)
  Sender: FDA-Public Use
  Company Number: NVSC2020CO293156

PATIENT
  Age: 40 Year
  Sex: Male
  Weight: 52 kg

DRUGS (1)
  1. GILENYA [Suspect]
     Active Substance: FINGOLIMOD HYDROCHLORIDE
     Indication: MULTIPLE SCLEROSIS
     Dosage: 0.5 MG, QD
     Route: 048
     Dates: start: 20160901

REACTIONS (7)
  - Trigeminal neuralgia [Recovering/Resolving]
  - Pain [Recovering/Resolving]
  - Facial pain [Recovering/Resolving]
  - Pyrexia [Recovering/Resolving]
  - COVID-19 [Recovering/Resolving]
  - Multiple sclerosis relapse [Recovering/Resolving]
  - Dyspnoea [Recovering/Resolving]

NARRATIVE: CASE EVENT DATE: 20201023
